FAERS Safety Report 4691646-4 (Version None)
Quarter: 2005Q2

REPORT INFORMATION
  Report Type: 
  Country: None (occurrence: None)
  Receive Date: 20050616
  Receipt Date: 20050607
  Transmission Date: 20051028
  Serious: Yes (Other)
  Sender: FDA-Public Use
  Company Number: NZ-JNJFOC-20050505971

PATIENT
  Age: 55 Year
  Sex: Female

DRUGS (10)
  1. REMICADE [Suspect]
     Indication: RHEUMATOID ARTHRITIS
     Dosage: 3 INFUSIONS.
     Route: 042
  2. METHOTREXATE [Concomitant]
  3. FOLIC ACID [Concomitant]
  4. PREDNISONE TAB [Concomitant]
  5. LOSEC [Concomitant]
  6. HYDROXYCHLOROQUINE SULFATE [Concomitant]
  7. CELEBREX [Concomitant]
  8. PARACETAMOL [Concomitant]
  9. PARADEX [Concomitant]
  10. PARADEX [Concomitant]

REACTIONS (1)
  - PARKINSON'S DISEASE [None]
